FAERS Safety Report 5427769-1 (Version None)
Quarter: 2007Q3

REPORT INFORMATION
  Report Type: 
  Country: None (occurrence: None)
  Receive Date: 20070828
  Receipt Date: 20070820
  Transmission Date: 20080115
  Serious: Yes (Hospitalization)
  Sender: FDA-Public Use
  Company Number: FRWYE195620AUG07

PATIENT
  Sex: Male
  Weight: 70 kg

DRUGS (16)
  1. TAZOCILLINE [Suspect]
     Indication: INFECTION
     Route: 042
     Dates: start: 20070608, end: 20070628
  2. RIFADIN [Suspect]
     Indication: INFECTION
     Route: 042
     Dates: start: 20070608, end: 20070626
  3. BACTRIM [Suspect]
     Indication: INFECTION
     Route: 042
     Dates: start: 20070608, end: 20070626
  4. LOXAPAC [Concomitant]
     Route: 048
     Dates: start: 20070607, end: 20070627
  5. DAFALGAN [Concomitant]
     Route: 048
     Dates: start: 20070511, end: 20070628
  6. NEURONTIN [Concomitant]
     Dosage: 1200 MG TOTAL DAILY
     Route: 048
     Dates: start: 20070531, end: 20070628
  7. HYPNOVEL [Concomitant]
     Indication: ANAESTHESIA
     Dosage: UNKNOWN
     Dates: start: 20070620, end: 20070620
  8. KETAMINE HCL [Concomitant]
     Indication: ANAESTHESIA
     Dosage: UNKNOWN
     Dates: start: 20070620, end: 20070620
  9. SUFENTA [Concomitant]
     Indication: ANAESTHESIA
     Dates: start: 20070620, end: 20070620
  10. TRACRIUM [Concomitant]
     Indication: ANAESTHESIA
     Dosage: 50-70 MG IN TOTAL
     Dates: start: 20070620, end: 20070620
  11. DIPRIVAN [Concomitant]
     Indication: ANAESTHESIA
     Dosage: 200-300 MG IN TOTAL
     Dates: start: 20070620, end: 20070620
  12. KETOPROFEN [Concomitant]
     Dosage: UNKNOWN
  13. IMOVANE [Concomitant]
     Dosage: UNKNOWN
  14. INIPOMP [Concomitant]
     Dosage: UNKNOWN
  15. MYCOSTATIN [Concomitant]
     Dosage: UNKNOWN
  16. ISOFLURANE [Suspect]
     Indication: ANAESTHESIA
     Route: 055
     Dates: start: 20070620, end: 20070620

REACTIONS (13)
  - APLASTIC ANAEMIA [None]
  - BLOOD LACTATE DEHYDROGENASE INCREASED [None]
  - C-REACTIVE PROTEIN INCREASED [None]
  - CYTOLYTIC HEPATITIS [None]
  - GAMMA-GLUTAMYLTRANSFERASE INCREASED [None]
  - HEPATITIS CHOLESTATIC [None]
  - IRON DEFICIENCY [None]
  - LEUKOPENIA [None]
  - NAUSEA [None]
  - NEUTROPENIA [None]
  - PYREXIA [None]
  - SERUM FERRITIN INCREASED [None]
  - VOMITING [None]
